FAERS Safety Report 11696333 (Version 1)
Quarter: 2015Q4

REPORT INFORMATION
  Report Type: Spontaneous
  Country: IR (occurrence: IR)
  Receive Date: 20151104
  Receipt Date: 20151104
  Transmission Date: 20160304
  Serious: Yes (Other)
  Sender: FDA-Public Use
  Company Number: IR-MYLANLABS-2015M1037653

PATIENT

DRUGS (9)
  1. XELODA [Suspect]
     Active Substance: CAPECITABINE
     Dosage: 1000 MG/M2 TWICE DAILY FROM DAY 1 EVENING TO DAY 15 MORNING EVERY 3 WEEKS FOR 3 CYCLES
     Route: 048
  2. XELODA [Suspect]
     Active Substance: CAPECITABINE
     Dosage: 1000 MG/M2 TWICE DAILY ON DAYS 1-14 EVERY 3 WEEKS FOR 8 MONTHS
     Route: 048
  3. OXALIPLATIN. [Suspect]
     Active Substance: OXALIPLATIN
     Indication: COLON CANCER
     Dosage: 130 MG/M2 TWICE DAILY ON DAY 1 EVERY 3 WEEKS FOR 3 CYCLES
     Route: 042
  4. XELODA [Suspect]
     Active Substance: CAPECITABINE
     Indication: COLON CANCER
     Dosage: 1000 MG/M2 TWICE DAILY FROM DAY 1 EVENING TO DAY 15 MORNING EVERY 3 WEEKS FOR 3 CYCLES
     Route: 048
  5. XELODA [Suspect]
     Active Substance: CAPECITABINE
     Route: 048
  6. XELODA [Suspect]
     Active Substance: CAPECITABINE
     Route: 048
  7. OXALIPLATIN. [Suspect]
     Active Substance: OXALIPLATIN
     Dosage: 130 MG/M2 TWICE DAILY ON DAY 1 EVERY 3 WEEKS FOR 3 CYCLES
     Route: 042
  8. IRINOTECAN [Suspect]
     Active Substance: IRINOTECAN
     Indication: COLON CANCER
     Route: 065
  9. BEVACIZUMAB [Suspect]
     Active Substance: BEVACIZUMAB
     Indication: COLON CANCER
     Dosage: 7.5 MG/KG ON DAY 1 EVERY 3 WEEKS FOR 8 MONTHS
     Route: 042

REACTIONS (2)
  - Chronic myeloid leukaemia [Unknown]
  - Diarrhoea [Unknown]
